FAERS Safety Report 7544199-7 (Version None)
Quarter: 2011Q2

REPORT INFORMATION
  Report Type: 
  Country: None (occurrence: None)
  Receive Date: 20110613
  Receipt Date: 20060621
  Transmission Date: 20111010
  Serious: Yes (Hospitalization)
  Sender: FDA-Public Use
  Company Number: PHHO2006ES10068

PATIENT
  Age: 50 Year
  Sex: Male

DRUGS (6)
  1. GEMCITABINE [Concomitant]
  2. ZOMETA [Suspect]
     Indication: METASTASES TO BONE
     Dates: start: 20051122
  3. CISPLATIN [Concomitant]
  4. DEXAMETHASONE [Concomitant]
  5. RANITIDINE [Concomitant]
  6. DOCETAXEL [Concomitant]

REACTIONS (2)
  - DISEASE PROGRESSION [None]
  - PAIN [None]
